FAERS Safety Report 24225059 (Version 1)
Quarter: 2024Q3

REPORT INFORMATION
  Report Type: Spontaneous
  Country: US (occurrence: US)
  Receive Date: 20240820
  Receipt Date: 20240820
  Transmission Date: 20241016
  Serious: No
  Sender: ABBVIE
  Company Number: US-ABBVIE-5883445

PATIENT
  Sex: Female

DRUGS (1)
  1. SKYRIZI [Suspect]
     Active Substance: RISANKIZUMAB-RZAA
     Indication: Crohn^s disease
     Route: 042
     Dates: start: 2024

REACTIONS (6)
  - Pain [Unknown]
  - Dizziness [Recovered/Resolved]
  - Gastrointestinal inflammation [Unknown]
  - Constipation [Unknown]
  - Arthralgia [Unknown]
  - Headache [Unknown]

NARRATIVE: CASE EVENT DATE: 20240101
